FAERS Safety Report 11618489 (Version 1)
Quarter: 2015Q4

REPORT INFORMATION
  Report Type: Spontaneous
  Country: US (occurrence: US)
  Receive Date: 20151012
  Receipt Date: 20151012
  Transmission Date: 20160304
  Serious: No
  Sender: FDA-Public Use
  Company Number: US-AMGEN-USASP2015104364

PATIENT
  Sex: Female

DRUGS (1)
  1. ENBREL [Suspect]
     Active Substance: ETANERCEPT
     Indication: RHEUMATOID ARTHRITIS
     Dosage: 50 MG ONCE A WEEK
     Route: 058
     Dates: end: 201507

REACTIONS (5)
  - Injection site erythema [Unknown]
  - Throat irritation [Unknown]
  - Injection site swelling [Unknown]
  - Injection site pain [Unknown]
  - Oropharyngeal pain [Unknown]
